FAERS Safety Report 10732985 (Version 1)
Quarter: 2015Q1

REPORT INFORMATION
  Report Type: Spontaneous
  Country: DE (occurrence: DE)
  Receive Date: 20150123
  Receipt Date: 20150123
  Transmission Date: 20150721
  Serious: Yes (Other)
  Sender: FDA-Public Use
  Company Number: DE-PFIZER INC-2015027333

PATIENT
  Age: 30 Year
  Sex: Female
  Weight: 103 kg

DRUGS (8)
  1. SERTRALINE HCL [Suspect]
     Active Substance: SERTRALINE HYDROCHLORIDE
     Indication: OBSESSIVE-COMPULSIVE DISORDER
     Dosage: 150 MG, 1X/DAY
     Route: 048
  2. PREDNISOLON [Suspect]
     Active Substance: PREDNISOLONE
     Indication: ASSISTED FERTILISATION
     Dosage: 15 MG, 3X/DAY
     Route: 048
  3. FOLIC ACID ^RATIOPHARM^ [Concomitant]
     Indication: PROPHYLAXIS OF NEURAL TUBE DEFECT
     Dosage: 5 MG, 1X/DAY
     Route: 048
  4. ASS 100 [Concomitant]
     Active Substance: ASPIRIN
     Indication: ASSISTED FERTILISATION
     Dosage: 100 MG, 1X/DAY
     Route: 048
  5. FRAGMIN [Concomitant]
     Active Substance: DALTEPARIN SODIUM
     Indication: ASSISTED FERTILISATION
     Dosage: 5000 IU, 1X/DAY, 0. - 24. GESTATIONAL WEEK
     Route: 058
     Dates: start: 20130906, end: 2014
  6. UTROGEST [Concomitant]
     Active Substance: PROGESTERONE
     Indication: ASSISTED FERTILISATION
     Dosage: 0. - 12. GESTATIONAL WEEK
     Route: 067
     Dates: start: 20130906, end: 201312
  7. THYBON [Concomitant]
     Indication: AUTOIMMUNE THYROIDITIS
     Dosage: 10 ?G, 1X/DAY
     Route: 048
  8. L-THYROXIN [Concomitant]
     Active Substance: LEVOTHYROXINE SODIUM
     Indication: AUTOIMMUNE THYROIDITIS
     Dosage: 175 ?G, 1X/DAY
     Route: 048

REACTIONS (4)
  - Cystitis [Unknown]
  - Kidney infection [Unknown]
  - Preterm premature rupture of membranes [Unknown]
  - Gestational diabetes [Unknown]

NARRATIVE: CASE EVENT DATE: 2014
